FAERS Safety Report 4560042-2 (Version None)
Quarter: 2005Q1

REPORT INFORMATION
  Report Type: 
  Country: None (occurrence: None)
  Receive Date: 20050125
  Receipt Date: 20050113
  Transmission Date: 20050727
  Serious: Yes (Hospitalization)
  Sender: FDA-Public Use
  Company Number: US-JNJFOC-20050103624

PATIENT
  Sex: Female
  Weight: 63.5 kg

DRUGS (13)
  1. INFLIXIMAB [Suspect]
     Indication: RHEUMATOID ARTHRITIS
     Route: 042
  2. CALCIUM GLUCONATE [Concomitant]
  3. CARAFATE [Concomitant]
  4. COZAAR [Concomitant]
  5. ECOTRIN [Concomitant]
  6. FOLIC ACID [Concomitant]
  7. INDAPAMIDE [Concomitant]
  8. K-DUR 10 [Concomitant]
  9. METHOTREXATE [Concomitant]
  10. PLAVIX [Concomitant]
  11. SPIRONOLACTONE [Concomitant]
  12. PROTONIX [Concomitant]
  13. LIPITOR [Concomitant]

REACTIONS (3)
  - CORONARY ARTERY DISEASE [None]
  - CORONARY ARTERY STENOSIS [None]
  - EJECTION FRACTION DECREASED [None]
